FAERS Safety Report 7003045-0 (Version None)
Quarter: 2010Q3

REPORT INFORMATION
  Report Type: 
  Country: None (occurrence: None)
  Receive Date: 20100920
  Receipt Date: 20090930
  Transmission Date: 20110219
  Serious: No
  Sender: FDA-Public Use
  Company Number: US-ASTRAZENECA-2009SE16871

PATIENT
  Age: 16080 Day
  Sex: Female
  Weight: 113.4 kg

DRUGS (2)
  1. SEROQUEL XR [Suspect]
     Route: 048
     Dates: start: 20090921
  2. TOPROL-XL [Concomitant]

REACTIONS (2)
  - HYPERHIDROSIS [None]
  - TEMPERATURE INTOLERANCE [None]
